FAERS Safety Report 6441225-3 (Version None)
Quarter: 2009Q4

REPORT INFORMATION
  Report Type: 
  Country: None (occurrence: None)
  Receive Date: 20091113
  Receipt Date: 20091113
  Transmission Date: 20100525
  Serious: Yes (Other)
  Sender: FDA-Public Use
  Company Number: None

PATIENT
  Age: 18 Year
  Sex: Female
  Weight: 92.9 kg

DRUGS (1)
  1. XOLAIR [Suspect]
     Indication: ASTHMA
     Dosage: 225MG Q2WEEKS SQ
     Route: 058
     Dates: start: 20080101, end: 20090810

REACTIONS (5)
  - DYSPHAGIA [None]
  - DYSPNOEA [None]
  - EYE PRURITUS [None]
  - EYE SWELLING [None]
  - SWELLING FACE [None]
